FAERS Safety Report 7314215-6 (Version None)
Quarter: 2011Q1

REPORT INFORMATION
  Report Type: 
  Country: None (occurrence: None)
  Receive Date: 20110225
  Receipt Date: 20100628
  Transmission Date: 20110831
  Serious: No
  Sender: FDA-Public Use
  Company Number: US-MYLANLABS-2010S1010356

PATIENT
  Age: 18 Year
  Sex: Male
  Weight: 61 kg

DRUGS (4)
  1. AMNESTEEM [Suspect]
     Route: 048
     Dates: start: 20100407, end: 20100608
  2. AMNESTEEM [Suspect]
     Indication: ACNE
     Dates: start: 20091209, end: 20100407
  3. AMNESTEEM [Suspect]
     Dates: start: 20091209, end: 20100407
  4. AMNESTEEM [Suspect]
     Dates: start: 20100407, end: 20100608

REACTIONS (3)
  - DEPRESSION [None]
  - CRYING [None]
  - MOOD ALTERED [None]
